FAERS Safety Report 12993528 (Version 1)
Quarter: 2016Q4

REPORT INFORMATION
  Report Type: Spontaneous
  Country: US (occurrence: US)
  Receive Date: 20161201
  Receipt Date: 20161201
  Transmission Date: 20170207
  Serious: Yes (Hospitalization)
  Sender: FDA-Public Use
  Company Number: None

PATIENT
  Age: 58 Year
  Sex: Female
  Weight: 77.18 kg

DRUGS (12)
  1. RANEXA [Concomitant]
     Active Substance: RANOLAZINE
  2. RAMIPRIL. [Concomitant]
     Active Substance: RAMIPRIL
  3. GLIMEPIRIDE. [Concomitant]
     Active Substance: GLIMEPIRIDE
  4. CALCIUM W/VITAMIN D [Concomitant]
     Active Substance: CALCIUM\VITAMIN D
  5. CLOPIDOGREL [Concomitant]
     Active Substance: CLOPIDOGREL BISULFATE
  6. ISOSORBIDE. [Concomitant]
     Active Substance: ISOSORBIDE
  7. INVOKAMET [Suspect]
     Active Substance: CANAGLIFLOZIN\METFORMIN HYDROCHLORIDE
     Indication: BLOOD GLUCOSE INCREASED
     Dosage: ?          QUANTITY: 1 TABLET 2XS DAILY?
     Route: 048
     Dates: start: 20150928, end: 20151122
  8. METFORMIN [Concomitant]
     Active Substance: METFORMIN HYDROCHLORIDE
  9. ASPIRIN. [Concomitant]
     Active Substance: ASPIRIN
  10. METOPROLOL. [Concomitant]
     Active Substance: METOPROLOL
  11. CRESTOR [Concomitant]
     Active Substance: ROSUVASTATIN CALCIUM
  12. DOXYCLYCINE [Concomitant]
     Active Substance: DOXYCYCLINE

REACTIONS (5)
  - Myocardial infarction [None]
  - Chest pain [None]
  - Vaginal infection [None]
  - Thirst [None]
  - Vulvovaginal rash [None]

NARRATIVE: CASE EVENT DATE: 201511
